FAERS Safety Report 4299781-X (Version None)
Quarter: 2004Q1

REPORT INFORMATION
  Report Type: 
  Country: None (occurrence: None)
  Receive Date: 20040126
  Receipt Date: 20031113
  Transmission Date: 20041129
  Serious: No
  Sender: FDA-Public Use
  Company Number: USA031152521

PATIENT
  Age: 57 Year
  Sex: Female

DRUGS (7)
  1. STRATTERA [Suspect]
     Indication: ATTENTION DEFICIT/HYPERACTIVITY DISORDER
     Dosage: 80 MG/DAY
     Dates: start: 20030707, end: 20031001
  2. ZYPREXA [Concomitant]
  3. CELEXA [Concomitant]
  4. WELLBUTRIN [Concomitant]
  5. NEURONTIN [Concomitant]
  6. KLONOPIN [Concomitant]
  7. ELAVIL [Concomitant]

REACTIONS (2)
  - APHASIA [None]
  - HYPERREFLEXIA [None]
